FAERS Safety Report 15881579 (Version 2)
Quarter: 2019Q1

REPORT INFORMATION
  Report Type: Spontaneous
  Country: US (occurrence: US)
  Receive Date: 20190128
  Receipt Date: 20190131
  Transmission Date: 20190417
  Serious: Yes (Other)
  Sender: FDA-Public Use
  Company Number: PHEH2019US003787

PATIENT
  Age: 75 Year
  Sex: Female

DRUGS (7)
  1. PALBOCICLIB [Suspect]
     Active Substance: PALBOCICLIB
     Dosage: 100 MG, UNK
     Route: 065
     Dates: start: 20161027
  2. ZOMETA [Suspect]
     Active Substance: ZOLEDRONIC ACID
     Indication: OSTEOPENIA
     Dosage: UNK (EVERY SIX MONTHS)
     Route: 065
  3. EVEROLIMUS. [Suspect]
     Active Substance: EVEROLIMUS
     Indication: PRODUCT USED FOR UNKNOWN INDICATION
     Dosage: UNK
     Route: 065
     Dates: start: 20170424, end: 20171007
  4. CAPECITABINE. [Suspect]
     Active Substance: CAPECITABINE
     Indication: PRODUCT USED FOR UNKNOWN INDICATION
     Dosage: UNK
     Route: 065
     Dates: start: 20170731
  5. PALBOCICLIB [Suspect]
     Active Substance: PALBOCICLIB
     Indication: BREAST CANCER
     Dosage: 125 MG, UNK
     Route: 065
     Dates: start: 20160927
  6. FASLODEX [Suspect]
     Active Substance: FULVESTRANT
     Indication: PRODUCT USED FOR UNKNOWN INDICATION
     Dosage: UNK
     Route: 065
     Dates: start: 20170424, end: 20171007
  7. LETROZOLE. [Suspect]
     Active Substance: LETROZOLE
     Indication: BREAST CANCER
     Dosage: UNK
     Route: 065
     Dates: start: 20160927

REACTIONS (18)
  - Neutropenia [Unknown]
  - Carcinoid tumour of the small bowel [Unknown]
  - Bladder hypertrophy [Unknown]
  - Metastases to retroperitoneum [Unknown]
  - Abdominal distension [Unknown]
  - Micturition urgency [Unknown]
  - Abdominal pain [Unknown]
  - Ureteric injury [Unknown]
  - Metastases to bladder [Unknown]
  - Malignant neoplasm progression [Unknown]
  - Metastasis [Unknown]
  - Thrombocytopenia [Unknown]
  - Haematuria [Unknown]
  - Cholelithiasis [Unknown]
  - Hydronephrosis [Unknown]
  - Ureteric dilatation [Unknown]
  - Small intestinal obstruction [Unknown]
  - Breast cancer [Unknown]

NARRATIVE: CASE EVENT DATE: 2016
